FAERS Safety Report 5415120-2 (Version None)
Quarter: 2007Q3

REPORT INFORMATION
  Report Type: 
  Country: None (occurrence: None)
  Receive Date: 20070815
  Receipt Date: 20070718
  Transmission Date: 20080115
  Serious: No
  Sender: FDA-Public Use
  Company Number: A0656653A

PATIENT
  Age: 51 Year
  Sex: Female
  Weight: 79.5 kg

DRUGS (9)
  1. COREG CR [Suspect]
     Indication: HYPERTENSION
     Dosage: 40MG PER DAY
     Route: 048
     Dates: start: 20070413
  2. COREG [Concomitant]
     Indication: HYPERTENSION
     Dosage: 25MG TWICE PER DAY
     Route: 048
  3. CRESTOR [Concomitant]
     Indication: BLOOD CHOLESTEROL INCREASED
     Dosage: 5MG AT NIGHT
     Dates: start: 20070413, end: 20070613
  4. NEXIUM [Concomitant]
     Dosage: 40MG PER DAY
     Route: 048
     Dates: start: 20070413
  5. LEVOTHYROXINE SODIUM [Concomitant]
     Indication: HYPOTHYROIDISM
     Dosage: .88MCG PER DAY
     Dates: start: 20070413
  6. FOSAMAX [Concomitant]
     Indication: OSTEOPENIA
     Dosage: 70MG WEEKLY
  7. MICARDIS [Concomitant]
     Indication: HYPERTENSION
     Dosage: 80MG PER DAY
     Route: 048
  8. FUROSEMIDE [Concomitant]
     Indication: HYPERTENSION
     Dosage: .5TAB PER DAY
     Dates: start: 20070413, end: 20070614
  9. ASPIRIN [Concomitant]
     Route: 048

REACTIONS (2)
  - BLOOD PRESSURE INCREASED [None]
  - DRUG INEFFECTIVE [None]
